FAERS Safety Report 8443146-3 (Version None)
Quarter: 2012Q2

REPORT INFORMATION
  Report Type: 
  Country: None (occurrence: None)
  Receive Date: 20120615
  Receipt Date: 20120606
  Transmission Date: 20120825
  Serious: Yes (Hospitalization)
  Sender: FDA-Public Use
  Company Number: US-MERCK-1204USA04579

PATIENT
  Age: 86 Year
  Sex: Female

DRUGS (4)
  1. FOSAMAX [Suspect]
     Route: 048
     Dates: start: 19981021, end: 20001009
  2. BONIVA [Suspect]
     Route: 065
     Dates: start: 20070901, end: 20080801
  3. FOSAMAX [Suspect]
     Route: 048
     Dates: start: 20070625, end: 20070901
  4. FOSAMAX [Suspect]
     Route: 048
     Dates: start: 20010601, end: 20020108

REACTIONS (4)
  - LIMB DISCOMFORT [None]
  - FEMUR FRACTURE [None]
  - DEVICE BREAKAGE [None]
  - FRACTURE NONUNION [None]
